FAERS Safety Report 5532403-6 (Version None)
Quarter: 2007Q4

REPORT INFORMATION
  Report Type: 
  Country: None (occurrence: None)
  Receive Date: 20071120
  Receipt Date: 20070827
  Transmission Date: 20080405
  Serious: No
  Sender: FDA-Public Use
  Company Number: WAES 0708USA05071

PATIENT
  Age: 48 Year
  Sex: Female

DRUGS (9)
  1. JANUVIA [Suspect]
     Indication: DIABETES MELLITUS
     Dosage: 100 MG/DAILY/PO
     Route: 048
  2. BRONKAID MIST [Concomitant]
  3. DIOVAN [Concomitant]
  4. LEXAPRO [Concomitant]
  5. LIDEX [Concomitant]
  6. LOMOTIL [Concomitant]
  7. NOVOLOG [Concomitant]
  8. SEASONALE [Concomitant]
  9. SYNTHROID [Concomitant]

REACTIONS (1)
  - ASTHMA [None]
